FAERS Safety Report 6369424-X (Version None)
Quarter: 2009Q3

REPORT INFORMATION
  Report Type: 
  Country: None (occurrence: None)
  Receive Date: 20090917
  Receipt Date: 20090910
  Transmission Date: 20100115
  Serious: Yes (Hospitalization)
  Sender: FDA-Public Use
  Company Number: 2009AL001470

PATIENT
  Sex: Female

DRUGS (14)
  1. DIGOXIN [Suspect]
     Dosage: PO
     Route: 048
  2. SPIRONOLACTONE [Concomitant]
  3. COREG [Concomitant]
  4. LISINOPRIL [Concomitant]
  5. COUMADIN [Concomitant]
  6. HYDROCHLOROTHIAZIDE [Concomitant]
  7. PROPHYLTHIURACIL [Concomitant]
  8. DARVOCET [Concomitant]
  9. N-100 [Concomitant]
  10. K-DUR [Concomitant]
  11. MECLIZINE [Concomitant]
  12. TAGAMET [Concomitant]
  13. TYLENOL (CAPLET) [Concomitant]
  14. PROPRANOLOL [Concomitant]

REACTIONS (25)
  - ABDOMINAL DISCOMFORT [None]
  - ABDOMINAL PAIN [None]
  - ANHEDONIA [None]
  - AORTIC VALVE INCOMPETENCE [None]
  - AORTIC VALVE SCLEROSIS [None]
  - ASTHENIA [None]
  - ATRIAL FIBRILLATION [None]
  - CARDIAC ANEURYSM [None]
  - CARDIAC MURMUR [None]
  - CARDIOMYOPATHY [None]
  - DYSKINESIA [None]
  - DYSPNOEA EXERTIONAL [None]
  - ECONOMIC PROBLEM [None]
  - ELECTROCARDIOGRAM ST-T SEGMENT DEPRESSION [None]
  - ELECTROCARDIOGRAM T WAVE BIPHASIC [None]
  - EMOTIONAL DISORDER [None]
  - FAMILY STRESS [None]
  - HYPOMAGNESAEMIA [None]
  - INJURY [None]
  - LEFT VENTRICULAR HYPERTROPHY [None]
  - MENTAL DISORDER [None]
  - MITRAL VALVE INCOMPETENCE [None]
  - PAIN [None]
  - ULCER [None]
  - VENTRICULAR DYSFUNCTION [None]
